FAERS Safety Report 24458554 (Version 2)
Quarter: 2024Q4

REPORT INFORMATION
  Report Type: Spontaneous
  Country: US (occurrence: US)
  Receive Date: 20241018
  Receipt Date: 20241217
  Transmission Date: 20250115
  Serious: Yes (Hospitalization)
  Sender: UCB
  Company Number: US-UCBSA-2024052720

PATIENT
  Age: 52 Year
  Sex: Female

DRUGS (1)
  1. RYSTIGGO [Suspect]
     Active Substance: ROZANOLIXIZUMAB-NOLI
     Indication: Myasthenia gravis
     Dosage: 840 MILLIGRAM, WEEKLY (QW)
     Route: 058
     Dates: start: 20240925, end: 202410

REACTIONS (4)
  - Meningitis viral [Unknown]
  - Urinary tract infection [Unknown]
  - Back pain [Unknown]
  - Headache [Unknown]

NARRATIVE: CASE EVENT DATE: 20240928
